FAERS Safety Report 7423638-6 (Version None)
Quarter: 2011Q2

REPORT INFORMATION
  Report Type: 
  Country: None (occurrence: None)
  Receive Date: 20110402
  Receipt Date: 20110402
  Transmission Date: 20111010
  Serious: Yes (Hospitalization)
  Sender: FDA-Public Use
  Company Number: None

PATIENT
  Age: 81 Year
  Sex: Female
  Weight: 40 kg

DRUGS (7)
  1. MULTAQ [Concomitant]
  2. BENTYL [Concomitant]
  3. CALCIUM [Concomitant]
  4. ADVAIR DISKUS 100/50 [Concomitant]
  5. PRADAXA [Suspect]
     Indication: ATRIAL FIBRILLATION
     Dosage: 150MG BID PO RECENT
     Route: 048
  6. ATROVENT [Concomitant]
  7. DELSYM [Concomitant]

REACTIONS (3)
  - HAEMOPTYSIS [None]
  - DYSPNOEA [None]
  - HAEMATOCRIT DECREASED [None]
